FAERS Safety Report 5685174-7 (Version None)
Quarter: 2008Q1

REPORT INFORMATION
  Report Type: 
  Country: None (occurrence: None)
  Receive Date: 20080328
  Receipt Date: 20080318
  Transmission Date: 20080703
  Serious: Yes (Hospitalization)
  Sender: FDA-Public Use
  Company Number: JP-PFIZER INC-2008023506

PATIENT
  Sex: Female

DRUGS (7)
  1. IRINOTECAN HCL [Suspect]
     Indication: SMALL CELL LUNG CANCER STAGE UNSPECIFIED
     Dosage: TEXT:60 MG/M2 (60 MG/M2)-FREQ:INTERMITTENT 27JUL2007, 04SEP, 16OCT
     Dates: start: 20070727, end: 20070727
  2. IRINOTECAN HCL [Suspect]
     Dosage: TEXT:60 MG/M2 (60 MG/M2)
  3. CISPLATIN [Suspect]
     Dosage: TEXT:60 MG/M2 (60 MG/M2)-FREQ:INTERMITTENT 27JUL2007
     Route: 042
     Dates: start: 20070727, end: 20070727
  4. CISPLATIN [Suspect]
     Dosage: TEXT:120 MG/M2 (60 MG/M2)
     Route: 042
     Dates: start: 20070904
  5. LOXONIN [Concomitant]
     Indication: TUMOUR ASSOCIATED FEVER
     Dosage: TEXT:3 DF (1 DF, 3 IN 1 D)
     Route: 048
  6. CYTOTEC [Concomitant]
     Indication: PROPHYLAXIS AGAINST GASTROINTESTINAL ULCER
     Dosage: TEXT:3 DF (1 DF, 3 IN 1 D)
     Route: 048
     Dates: start: 20070615
  7. CODEINE SUL TAB [Concomitant]
     Indication: COUGH
     Route: 048

REACTIONS (1)
  - TRACHEAL FISTULA [None]
